FAERS Safety Report 14765127 (Version 2)
Quarter: 2018Q3

REPORT INFORMATION
  Report Type: Spontaneous
  Country: IT (occurrence: IT)
  Receive Date: 20180416
  Receipt Date: 20180712
  Transmission Date: 20181010
  Serious: Yes (Other)
  Sender: FDA-Public Use
  Company Number: IT-TEVA-2018-IT-880222

PATIENT
  Age: 60 Year
  Sex: Male
  Weight: 185 kg

DRUGS (2)
  1. CISPLATINO ACCORD HEALTHCARE ITALIA 1 MG/ML [Suspect]
     Active Substance: CISPLATIN
     Indication: NEUROENDOCRINE TUMOUR OF THE LUNG
     Route: 042
     Dates: start: 20170925
  2. ETOPOSIDE TEVA 20 MG/ML [Suspect]
     Active Substance: ETOPOSIDE
     Indication: NEUROENDOCRINE TUMOUR OF THE LUNG
     Route: 065
     Dates: start: 20170925

REACTIONS (2)
  - Erythropenia [Recovered/Resolved]
  - Anaemia [Recovered/Resolved]

NARRATIVE: CASE EVENT DATE: 20171107
